FAERS Safety Report 8552264-0 (Version None)
Quarter: 2012Q3

REPORT INFORMATION
  Report Type: 
  Country: None (occurrence: None)
  Receive Date: 20120723
  Receipt Date: 20120723
  Transmission Date: 20120928
  Serious: No
  Sender: FDA-Public Use
  Company Number: None

PATIENT
  Age: 36 Year
  Sex: Female
  Weight: 58.9676 kg

DRUGS (1)
  1. NUVARING [Suspect]
     Indication: CONTRACEPTION
     Dates: start: 20100901, end: 20101101

REACTIONS (6)
  - FORMICATION [None]
  - DISCOMFORT [None]
  - MEDICAL DEVICE COMPLICATION [None]
  - VULVOVAGINAL DISCOMFORT [None]
  - PAIN [None]
  - FUNGAL INFECTION [None]
